FAERS Safety Report 8010287-4 (Version None)
Quarter: 2011Q4

REPORT INFORMATION
  Report Type: 
  Country: None (occurrence: None)
  Receive Date: 20111228
  Receipt Date: 20111219
  Transmission Date: 20120403
  Serious: Yes (Other)
  Sender: FDA-Public Use
  Company Number: IT-TEVA-314611ISR

PATIENT
  Age: 48 Year
  Sex: Female

DRUGS (3)
  1. VINORELBINE [Suspect]
  2. DOXORUBICIN HCL [Suspect]
  3. GEMCITABINE [Suspect]

REACTIONS (1)
  - TOXIC EPIDERMAL NECROLYSIS [None]
